FAERS Safety Report 7770839-3 (Version None)
Quarter: 2011Q3

REPORT INFORMATION
  Report Type: 
  Country: None (occurrence: None)
  Receive Date: 20110922
  Receipt Date: 20110103
  Transmission Date: 20111222
  Serious: No
  Sender: FDA-Public Use
  Company Number: US-ASTRAZENECA-2011SE00255

PATIENT
  Age: 18 Year
  Sex: Male

DRUGS (9)
  1. SEROQUEL XR [Suspect]
     Indication: BIPOLAR I DISORDER
     Route: 048
     Dates: start: 20100101
  2. SEROQUEL XR [Suspect]
     Route: 048
     Dates: start: 20100101
  3. EQUETRO [Concomitant]
  4. SEROQUEL XR [Suspect]
     Route: 048
     Dates: start: 20100101
  5. SEROQUEL XR [Suspect]
     Route: 048
     Dates: start: 20101229
  6. SEROQUEL XR [Suspect]
     Route: 048
     Dates: start: 20100101
  7. SEROQUEL XR [Suspect]
     Indication: SCHIZOAFFECTIVE DISORDER
     Route: 048
     Dates: start: 20100101
  8. SEROQUEL XR [Suspect]
     Route: 048
     Dates: start: 20101229
  9. SEROQUEL XR [Suspect]
     Route: 048
     Dates: start: 20100101

REACTIONS (5)
  - IRRITABILITY [None]
  - PSYCHOTIC DISORDER [None]
  - DRUG INEFFECTIVE [None]
  - HOSTILITY [None]
  - AGITATION [None]
